FAERS Safety Report 19650983 (Version 1)
Quarter: 2021Q3

REPORT INFORMATION
  Report Type: Spontaneous
  Country: US (occurrence: US)
  Receive Date: 20210731
  Receipt Date: 20210731
  Transmission Date: 20211014
  Serious: Yes (Hospitalization)
  Sender: FDA-Public Use
  Company Number: None

PATIENT
  Age: 77 Year
  Sex: Female

DRUGS (1)
  1. REVLIMID [Suspect]
     Active Substance: LENALIDOMIDE
     Indication: MONOCLONAL GAMMOPATHY
     Route: 048
     Dates: start: 20191226, end: 20210511

REACTIONS (8)
  - Nephropathy [None]
  - Therapy interrupted [None]
  - Generalised oedema [None]
  - Protein urine present [None]
  - Liver function test abnormal [None]
  - Blood creatine abnormal [None]
  - Cardiac failure [None]
  - Congestive hepatopathy [None]

NARRATIVE: CASE EVENT DATE: 20210511
